FAERS Safety Report 25278062 (Version 1)
Quarter: 2025Q2

REPORT INFORMATION
  Report Type: Spontaneous
  Country: TR (occurrence: TR)
  Receive Date: 20250507
  Receipt Date: 20250507
  Transmission Date: 20250717
  Serious: Yes (Life-Threatening, Other)
  Sender: PFIZER
  Company Number: TR-PFIZER INC-PV202500053950

PATIENT
  Sex: Male
  Weight: 1.785 kg

DRUGS (4)
  1. AMPICILLIN SODIUM\SULBACTAM SODIUM [Suspect]
     Active Substance: AMPICILLIN SODIUM\SULBACTAM SODIUM
     Indication: Neonatal pneumonia
  2. AMPICILLIN SODIUM\SULBACTAM SODIUM [Suspect]
     Active Substance: AMPICILLIN SODIUM\SULBACTAM SODIUM
     Indication: Sepsis neonatal
  3. AMIKACIN [Suspect]
     Active Substance: AMIKACIN
     Indication: Neonatal pneumonia
  4. AMIKACIN [Suspect]
     Active Substance: AMIKACIN
     Indication: Sepsis neonatal

REACTIONS (1)
  - Hypercapnia [Unknown]
